FAERS Safety Report 7003109-1 (Version None)
Quarter: 2010Q3

REPORT INFORMATION
  Report Type: 
  Country: None (occurrence: None)
  Receive Date: 20100920
  Receipt Date: 20100510
  Transmission Date: 20110219
  Serious: No
  Sender: FDA-Public Use
  Company Number: US-ASTRAZENECA-2010SE21443

PATIENT
  Sex: Female
  Weight: 72 kg

DRUGS (1)
  1. SEROQUEL [Suspect]
     Indication: INSOMNIA
     Dosage: 50 MG 1-2 AT BEDTIME AS NEEDED
     Route: 048

REACTIONS (1)
  - MYALGIA [None]
